FAERS Safety Report 24959192 (Version 2)
Quarter: 2025Q3

REPORT INFORMATION
  Report Type: Spontaneous
  Country: CA (occurrence: CA)
  Receive Date: 20250212
  Receipt Date: 20250825
  Transmission Date: 20251020
  Serious: Yes (Hospitalization, Other)
  Sender: CSL BEHRING
  Company Number: CA-BEH-2025195009

PATIENT
  Age: 70 Year
  Sex: Female
  Weight: 87 kg

DRUGS (3)
  1. HUMAN IMMUNOGLOBULIN G [Suspect]
     Active Substance: HUMAN IMMUNOGLOBULIN G
     Indication: Secondary immunodeficiency
     Dosage: 6 G, QW
     Route: 058
  2. HUMAN IMMUNOGLOBULIN G [Suspect]
     Active Substance: HUMAN IMMUNOGLOBULIN G
     Dosage: 6 G, QW
     Route: 065
  3. CYMBALTA [Concomitant]
     Active Substance: DULOXETINE HYDROCHLORIDE
     Indication: Product used for unknown indication
     Route: 065

REACTIONS (10)
  - Anxiety [Recovering/Resolving]
  - Pneumonia [Recovering/Resolving]
  - Depression [Recovering/Resolving]
  - Basal cell carcinoma [Recovering/Resolving]
  - Haemorrhage subcutaneous [Recovering/Resolving]
  - Malignant melanoma [Recovering/Resolving]
  - Neoplasm [Recovering/Resolving]
  - Thyroid mass [Recovering/Resolving]
  - Weight increased [Unknown]
  - Off label use [Unknown]
